FAERS Safety Report 18130438 (Version 1)
Quarter: 2020Q3

REPORT INFORMATION
  Report Type: Spontaneous
  Country: DK (occurrence: DK)
  Receive Date: 20200810
  Receipt Date: 20200810
  Transmission Date: 20201103
  Serious: Yes (Hospitalization)
  Sender: FDA-Public Use
  Company Number: DK-JNJFOC-20200804159

PATIENT
  Age: 87 Year
  Sex: Male

DRUGS (2)
  1. RIVAROXABAN [Suspect]
     Active Substance: RIVAROXABAN
     Indication: ATRIAL FIBRILLATION
     Dosage: STRENGTH 15 MG
     Route: 048
     Dates: start: 2016, end: 20200701
  2. METOPROLOL. [Concomitant]
     Active Substance: METOPROLOL
     Indication: ARRHYTHMIA
     Dosage: STRENGTH: 50 MG.
     Route: 048
     Dates: start: 20180827

REACTIONS (7)
  - Headache [Unknown]
  - Basal ganglia haemorrhage [Unknown]
  - Facial paresis [Unknown]
  - Cerebrovascular accident [Unknown]
  - Musculoskeletal disorder [Unknown]
  - Dizziness [Unknown]
  - Dysphonia [Unknown]

NARRATIVE: CASE EVENT DATE: 20200621
